FAERS Safety Report 7028361-8 (Version None)
Quarter: 2010Q4

REPORT INFORMATION
  Report Type: 
  Country: None (occurrence: None)
  Receive Date: 20101005
  Receipt Date: 20101001
  Transmission Date: 20110411
  Serious: Yes (Hospitalization)
  Sender: FDA-Public Use
  Company Number: PT-ROCHE-728804

PATIENT
  Sex: Female
  Weight: 67 kg

DRUGS (14)
  1. HERCEPTIN [Suspect]
     Indication: ADJUVANT THERAPY
     Dosage: FORM:POWDER FOR CONCENTRATE FOR SOLUTION FOR INFUSION-150 MG, FREQUENCY:PER DAY, LOADING DOSE:8MG/KG
     Route: 042
     Dates: start: 20100705
  2. HERCEPTIN [Suspect]
     Dosage: FORM:POWDER FOR CONCENTRATE FOR SOLUTION FOR INFUSION-150 MG, FREQ:PER DAY, MAINTENANCE DOSE:6MG/KG
     Route: 042
     Dates: end: 20100816
  3. TICLOPIDINE HYDROCHLORIDE [Concomitant]
     Route: 048
  4. LOVASTATIN [Concomitant]
     Indication: DYSLIPIDAEMIA
     Route: 048
  5. METFORMIN [Concomitant]
     Indication: DIABETES MELLITUS
     Dosage: DRUG REPORTED AS METFORMIN 1000 MG
     Route: 048
  6. FERROUS SULFATE [Concomitant]
     Route: 048
  7. FOLIC ACID [Concomitant]
     Route: 048
  8. LISINOPRIL AND HYDROCHLOROTHIAZIDE [Concomitant]
     Indication: HYPERTENSION
     Dosage: DOSE: 20 MG/12.5 MG, FREQUENCY: PER DAY
     Route: 048
  9. FLUOROURACIL [Concomitant]
     Dosage: FIRST CYCLE START DATE: 17 MAY 2010
     Dates: start: 20100517
  10. FLUOROURACIL [Concomitant]
     Dosage: SECOND CYCLE START DATE: 7 JUNE 2010
     Dates: start: 20100607
  11. EPIRUBICIN [Concomitant]
     Dosage: FIRST CYCLE START DATE: 17-MAY-2010
     Dates: start: 20100517
  12. EPIRUBICIN [Concomitant]
     Dosage: SECOND CYCLE START DATE: 7 JUNE 2010
     Dates: start: 20100607
  13. CYCLOPHOSPHAMIDE [Concomitant]
     Dosage: FIRST CYCLE START DATE: 17 MAY 2010
     Dates: start: 20100517
  14. CYCLOPHOSPHAMIDE [Concomitant]
     Dosage: SECOND CYCLE START DATE: 07 JUNE 2010
     Dates: start: 20100607

REACTIONS (2)
  - DIALYSIS [None]
  - RENAL FAILURE [None]
